FAERS Safety Report 13390393 (Version 2)
Quarter: 2017Q2

REPORT INFORMATION
  Report Type: Spontaneous
  Country: RU (occurrence: RU)
  Receive Date: 20170331
  Receipt Date: 20170613
  Transmission Date: 20170830
  Serious: Yes (Life-Threatening)
  Sender: FDA-Public Use
  Company Number: RU-ASTRAZENECA-2017SE32400

PATIENT
  Age: 59 Year
  Sex: Male
  Weight: 94 kg

DRUGS (8)
  1. VERASHPIRON [Concomitant]
  2. BRILINTA [Suspect]
     Active Substance: TICAGRELOR
     Indication: ANGINA UNSTABLE
     Route: 048
     Dates: start: 20161005
  3. CONCOR [Concomitant]
     Active Substance: BISOPROLOL FUMARATE
  4. ATORVASTATIN [Concomitant]
     Active Substance: ATORVASTATIN
  5. INDAPAMIDE. [Concomitant]
     Active Substance: INDAPAMIDE
  6. SYDNOFARM [Concomitant]
  7. ENALAPRIL [Concomitant]
     Active Substance: ENALAPRIL
  8. AMLODIPINE [Concomitant]
     Active Substance: AMLODIPINE BESYLATE

REACTIONS (3)
  - Vascular stent thrombosis [Unknown]
  - Gastritis erosive [Unknown]
  - Gingival bleeding [Recovered/Resolved]

NARRATIVE: CASE EVENT DATE: 20170101
